FAERS Safety Report 15278329 (Version 1)
Quarter: 2018Q3

REPORT INFORMATION
  Report Type: Report from Study
  Country: TW (occurrence: TW)
  Receive Date: 20180814
  Receipt Date: 20180814
  Transmission Date: 20181010
  Serious: Yes (Hospitalization)
  Sender: FDA-Public Use
  Company Number: TW-TAKEDA-2018TUS024528

PATIENT
  Age: 40 Year
  Sex: Female

DRUGS (3)
  1. AZATHIOPRINE. [Concomitant]
     Active Substance: AZATHIOPRINE
     Dosage: UNK
     Dates: start: 20170613
  2. PREDNISOLONE. [Concomitant]
     Active Substance: PREDNISOLONE
     Dosage: UNK
     Dates: start: 20170306
  3. VEDOLIZUMAB [Suspect]
     Active Substance: VEDOLIZUMAB
     Indication: CROHN^S DISEASE
     Dosage: 300 MG, UNK
     Route: 042
     Dates: start: 20180718

REACTIONS (7)
  - Abdominal pain [Unknown]
  - Gastrooesophageal reflux disease [Unknown]
  - Pyrexia [Not Recovered/Not Resolved]
  - Chronic gastritis [Unknown]
  - Abdominal pain lower [Unknown]
  - Chills [Not Recovered/Not Resolved]
  - Myalgia [Unknown]

NARRATIVE: CASE EVENT DATE: 20180805
